FAERS Safety Report 20718667 (Version 1)
Quarter: 2022Q2

REPORT INFORMATION
  Report Type: Spontaneous
  Country: DE (occurrence: None)
  Receive Date: 20220418
  Receipt Date: 20220418
  Transmission Date: 20220721
  Serious: Yes (Other)
  Sender: FDA-Public Use
  Company Number: DE-ROCHE-3073642

PATIENT
  Sex: Female

DRUGS (1)
  1. OCREVUS [Suspect]
     Active Substance: OCRELIZUMAB
     Indication: Multiple sclerosis
     Route: 065
     Dates: end: 202010

REACTIONS (3)
  - JC polyomavirus test positive [Not Recovered/Not Resolved]
  - Multiple sclerosis relapse [Unknown]
  - B-lymphocyte count decreased [Not Recovered/Not Resolved]
